FAERS Safety Report 4944026-8 (Version None)
Quarter: 2006Q1

REPORT INFORMATION
  Report Type: 
  Country: None (occurrence: None)
  Receive Date: 20060310
  Receipt Date: 20060221
  Transmission Date: 20060701
  Serious: Yes (Hospitalization)
  Sender: FDA-Public Use
  Company Number: US200602004265

PATIENT
  Age: 96 Year
  Sex: Female

DRUGS (3)
  1. OLANZAPINE [Suspect]
     Dosage: 5 MG, DAILY (1/D), ORAL; 2.5 MG, DAILY (1/D), ORAL
     Route: 048
     Dates: start: 20040101, end: 20050101
  2. OLANZAPINE [Suspect]
     Dosage: 5 MG, DAILY (1/D), ORAL; 2.5 MG, DAILY (1/D), ORAL
     Route: 048
     Dates: start: 20050101, end: 20060213
  3. ARICEPT [Concomitant]

REACTIONS (5)
  - CARDIAC DISORDER [None]
  - MOANING [None]
  - RESPIRATORY DISORDER [None]
  - SOMNOLENCE [None]
  - URINARY TRACT INFECTION [None]
